FAERS Safety Report 8597625-9 (Version None)
Quarter: 2012Q3

REPORT INFORMATION
  Report Type: 
  Country: None (occurrence: None)
  Receive Date: 20120816
  Receipt Date: 20120806
  Transmission Date: 20120928
  Serious: Yes (Hospitalization)
  Sender: FDA-Public Use
  Company Number: US-JNJFOC-20120707472

PATIENT
  Sex: Male
  Weight: 116.3 kg

DRUGS (21)
  1. REMICADE [Suspect]
     Indication: COLITIS
     Route: 042
     Dates: start: 20120628
  2. VITAMIN D [Concomitant]
     Indication: VITAMIN D DEFICIENCY
     Dosage: THERAPY DURATION } 1 YEAR
  3. GLYCOPYRROLATE [Concomitant]
  4. PENTASA [Concomitant]
     Indication: CROHN'S DISEASE
     Dosage: THERAPY DURATION } 1 YEAR
  5. OMEPRAZOLE [Concomitant]
     Indication: GASTROOESOPHAGEAL REFLUX DISEASE
     Dosage: THERAPY DURATION } 1 YEAR
  6. PROPOFOL [Concomitant]
  7. REMICADE [Suspect]
     Route: 042
     Dates: start: 20120628
  8. REMICADE [Suspect]
     Route: 042
  9. TYLENOL W/ CODEINE [Concomitant]
  10. MORPHINE [Concomitant]
  11. REMICADE [Suspect]
     Route: 042
     Dates: start: 20110413
  12. ALBUTEROL [Concomitant]
  13. AMITRIPTYLINE HCL [Concomitant]
     Indication: ABDOMINAL PAIN
     Dates: start: 20111201
  14. ONDANSETRON [Concomitant]
  15. ROCURONIUM BROMIDE [Concomitant]
  16. REMICADE [Suspect]
     Indication: INFLAMMATORY BOWEL DISEASE
     Route: 042
  17. REMICADE [Suspect]
     Route: 042
     Dates: start: 20110413
  18. CALCIUM CARBONATE [Concomitant]
     Indication: MEDICAL DIET
     Dosage: THERAPY DURATION } 1 YEAR
  19. DEXAMETHASONE [Concomitant]
  20. NEOSTIGMINE METHYLSULFATE [Concomitant]
  21. PENTASA [Concomitant]
     Indication: INFLAMMATORY BOWEL DISEASE
     Dosage: THERAPY DURATION } 1 YEAR

REACTIONS (1)
  - COLITIS [None]
